FAERS Safety Report 12435860 (Version 1)
Quarter: 2016Q2

REPORT INFORMATION
  Report Type: Other
  Country: IT (occurrence: IT)
  Receive Date: 20160603
  Receipt Date: 20160603
  Transmission Date: 20160815
  Serious: Yes (Hospitalization)
  Sender: FDA-Public Use
  Company Number: IT-OSMOTICA_PHARMACEUTICAL_US_LLC-POI0573201600024

PATIENT
  Age: 61 Year
  Sex: Male

DRUGS (7)
  1. VENLAFAXINE [Suspect]
     Active Substance: VENLAFAXINE HYDROCHLORIDE
     Indication: DEPRESSED MOOD
     Dates: start: 201311, end: 201401
  2. TENOFOVIR DISOPROXIL FUMARATE. [Interacting]
     Active Substance: TENOFOVIR DISOPROXIL FUMARATE
     Indication: CHRONIC HEPATITIS B
     Dates: start: 201303
  3. ZOLPIDEM [Interacting]
     Active Substance: ZOLPIDEM\ZOLPIDEM TARTRATE
     Indication: INSOMNIA
  4. VENLAFAXINE [Interacting]
     Active Substance: VENLAFAXINE HYDROCHLORIDE
     Indication: INSOMNIA
     Dates: start: 201401, end: 201401
  5. PAROXETINE. [Interacting]
     Active Substance: PAROXETINE
     Indication: DEPRESSED MOOD
     Dates: start: 201311, end: 201401
  6. ZOLPIDEM [Interacting]
     Active Substance: ZOLPIDEM\ZOLPIDEM TARTRATE
     Indication: DEPRESSED MOOD
     Dates: start: 201311, end: 201401
  7. PAROXETINE. [Interacting]
     Active Substance: PAROXETINE
     Indication: INSOMNIA

REACTIONS (4)
  - Drug interaction [Recovered/Resolved]
  - Transaminases increased [Recovered/Resolved]
  - Incorrect dose administered [Recovered/Resolved]
  - Hepatitis B [Recovered/Resolved]

NARRATIVE: CASE EVENT DATE: 201311
